FAERS Safety Report 10389930 (Version 1)
Quarter: 2014Q3

REPORT INFORMATION
  Report Type: Report from Study
  Country: US (occurrence: US)
  Receive Date: 20140818
  Receipt Date: 20140818
  Transmission Date: 20150326
  Serious: Yes (Other)
  Sender: FDA-Public Use
  Company Number: US-ASTELLAS-2014US010259

PATIENT
  Sex: Male

DRUGS (4)
  1. ERLOTINIB [Suspect]
     Active Substance: ERLOTINIB
     Route: 065
  2. ERLOTINIB [Suspect]
     Active Substance: ERLOTINIB
     Indication: NON-SMALL CELL LUNG CANCER
     Route: 065
     Dates: start: 201301
  3. ERLOTINIB [Suspect]
     Active Substance: ERLOTINIB
     Route: 065
  4. ERLOTINIB [Suspect]
     Active Substance: ERLOTINIB

REACTIONS (7)
  - Renal impairment [Unknown]
  - Rash [Recovering/Resolving]
  - Pruritus [Unknown]
  - Miliaria [Unknown]
  - Haemorrhage [Unknown]
  - Malignant neoplasm progression [Unknown]
  - Skin disorder [Recovered/Resolved]
